FAERS Safety Report 14155146 (Version 1)
Quarter: 2017Q4

REPORT INFORMATION
  Report Type: Spontaneous
  Country: US (occurrence: US)
  Receive Date: 20171103
  Receipt Date: 20171103
  Transmission Date: 20180321
  Serious: Yes (Hospitalization, Other)
  Sender: FDA-Public Use
  Company Number: US-NOVOPROD-565379

PATIENT
  Age: 64 Year
  Sex: Male
  Weight: 118.82 kg

DRUGS (5)
  1. VICTOZA [Suspect]
     Active Substance: LIRAGLUTIDE
     Indication: TYPE 1 DIABETES MELLITUS
     Dosage: ACCIDENTAL DOUBLE DOSE
     Route: 058
     Dates: start: 20170920, end: 20170920
  2. HUMALOG [Concomitant]
     Active Substance: INSULIN LISPRO
     Indication: TYPE 1 DIABETES MELLITUS
     Dosage: UNK
     Route: 058
  3. VICTOZA [Suspect]
     Active Substance: LIRAGLUTIDE
     Dosage: 0.6 MG QD
     Route: 058
     Dates: start: 201709, end: 20170930
  4. VICTOZA [Suspect]
     Active Substance: LIRAGLUTIDE
     Dosage: 0.6 MG QD
     Route: 058
     Dates: start: 20170921, end: 201709
  5. LANTUS [Concomitant]
     Active Substance: INSULIN GLARGINE
     Indication: TYPE 1 DIABETES MELLITUS
     Dosage: UNK
     Route: 058

REACTIONS (12)
  - Feeling hot [Unknown]
  - Off label use [Recovered/Resolved]
  - Drug dose omission [Recovered/Resolved]
  - Hypothermia [Unknown]
  - Blood glucose increased [Unknown]
  - Blood glucose decreased [Unknown]
  - Extra dose administered [Recovered/Resolved]
  - Condition aggravated [Unknown]
  - Pyrexia [Unknown]
  - Nausea [Not Recovered/Not Resolved]
  - Cholelithiasis obstructive [Not Recovered/Not Resolved]
  - Haemolytic anaemia [Unknown]

NARRATIVE: CASE EVENT DATE: 2017
